FAERS Safety Report 5261983-3 (Version None)
Quarter: 2007Q1

REPORT INFORMATION
  Report Type: 
  Country: None (occurrence: None)
  Receive Date: 20070308
  Receipt Date: 20070227
  Transmission Date: 20070707
  Serious: Yes (Hospitalization)
  Sender: FDA-Public Use
  Company Number: 234382K06USA

PATIENT
  Age: 59 Year
  Sex: Female
  Weight: 63.5036 kg

DRUGS (4)
  1. REBIF [Suspect]
     Indication: MULTIPLE SCLEROSIS
     Dosage: 44 MCG, 3 IN 1 WEEKS, SUBCUTANEOUS
     Route: 058
     Dates: start: 20030422
  2. LOPRESSOR (IMETOPROLOL TARTRATE) [Concomitant]
  3. LISINOPRIL (LISINOPRIL /00894001/) [Concomitant]
  4. POTASSIUM SUPPLEMENT (POTASSIUM /00031401/) [Concomitant]

REACTIONS (3)
  - BENIGN LUNG NEOPLASM [None]
  - CHEST PAIN [None]
  - DYSPNOEA [None]
